FAERS Safety Report 8410128-7 (Version None)
Quarter: 2012Q2

REPORT INFORMATION
  Report Type: 
  Country: None (occurrence: None)
  Receive Date: 20120605
  Receipt Date: 20120523
  Transmission Date: 20120825
  Serious: Yes (Other)
  Sender: FDA-Public Use
  Company Number: PHHY2012US046602

PATIENT
  Sex: Female

DRUGS (4)
  1. EPIRUBICIN [Concomitant]
     Dosage: 75 MG/M2 EVERY 3 WEEKS
  2. DOCETAXEL [Concomitant]
     Dosage: 75 MG/M2 EVERY 3 WEEKS
  3. DEXAMETHASONE [Concomitant]
     Dosage: 20 MG, UNK
     Route: 048
  4. ZOLEDRONIC ACID [Suspect]
     Indication: METASTASES TO BONE
     Dosage: 4 MG EVERY 3 WEEKS

REACTIONS (1)
  - OSTEONECROSIS OF JAW [None]
